FAERS Safety Report 4872994-1 (Version None)
Quarter: 2005Q4

REPORT INFORMATION
  Report Type: 
  Country: None (occurrence: None)
  Receive Date: 20051201
  Receipt Date: 20050711
  Transmission Date: 20060501
  Serious: No
  Sender: FDA-Public Use
  Company Number: 2005PV000356

PATIENT
  Age: 69 Year
  Sex: Female
  Weight: 81.6475 kg

DRUGS (6)
  1. BYETTA [Suspect]
     Indication: DIABETES MELLITUS NON-INSULIN-DEPENDENT
     Dosage: 5 MCG;BID;SC
     Route: 058
     Dates: start: 20050705, end: 20050705
  2. BYETTA [Suspect]
     Indication: WEIGHT DECREASED
     Dosage: 5 MCG;BID;SC
     Route: 058
     Dates: start: 20050705, end: 20050705
  3. ACTOS [Concomitant]
  4. AMARYL [Concomitant]
  5. LESCOL [Concomitant]
  6. LOTREL [Concomitant]

REACTIONS (4)
  - HEADACHE [None]
  - INFLUENZA LIKE ILLNESS [None]
  - NAUSEA [None]
  - VOMITING [None]
